FAERS Safety Report 8807878 (Version 1)
Quarter: 2012Q4

REPORT INFORMATION
  Report Type: 
  Country: US (occurrence: US)
  Receive Date: 20120925
  Receipt Date: 20120925
  Transmission Date: 20130627
  Serious: Yes (Hospitalization, Other)
  Sender: FDA-Public Use
  Company Number: US-SHIRE-ALL1-2012-04355

PATIENT
  Sex: Female
  Weight: 61.22 kg

DRUGS (6)
  1. VYVANSE [Suspect]
     Indication: ATTENTION DEFICIT/HYPERACTIVITY DISORDER
     Dosage: 40 mg, Other (full capsule in AM, partial or full capsule in afternoon)
     Route: 048
     Dates: start: 2002, end: 2007
  2. VYVANSE [Suspect]
     Dosage: 60 mg, Other (full capsule in AM, partial or full capsule in the afternoon)
     Route: 048
     Dates: start: 2007, end: 2008
  3. VYVANSE [Suspect]
     Dosage: 70 mg, Other (full capsule in AM and partial or full capsule in afternoon)
     Route: 048
     Dates: start: 2008, end: 2009
  4. VYVANSE [Suspect]
     Dosage: 70 mg, Other (full capsule in AM and partial or full capsule in afternoon)
     Route: 048
     Dates: start: 2009
  5. CELEXA                             /00582602/ [Suspect]
     Indication: DEPRESSION
     Dosage: UNK, Unknown
     Route: 048
     Dates: end: 201206
  6. ZOLOFT [Suspect]
     Indication: DEPRESSION
     Dosage: UNK, Unknown
     Route: 048
     Dates: start: 201206, end: 201208

REACTIONS (6)
  - Pancreatitis [Recovered/Resolved]
  - Depression [Not Recovered/Not Resolved]
  - Speech disorder [Recovered/Resolved]
  - Anxiety [Not Recovered/Not Resolved]
  - Prescribed overdose [Not Recovered/Not Resolved]
  - Drug prescribing error [Not Recovered/Not Resolved]
